FAERS Safety Report 11203728 (Version 2)
Quarter: 2015Q3

REPORT INFORMATION
  Report Type: Report from Study
  Country: US (occurrence: US)
  Receive Date: 20150619
  Receipt Date: 20150903
  Transmission Date: 20151125
  Serious: Yes (Hospitalization, Other)
  Sender: FDA-Public Use
  Company Number: US-GILEAD-2015-0158637

PATIENT
  Age: 6 Year
  Sex: Female

DRUGS (6)
  1. AMBRISENTAN [Suspect]
     Active Substance: AMBRISENTAN
     Indication: CONGENITAL DIAPHRAGMATIC HERNIA
  2. AMBRISENTAN [Suspect]
     Active Substance: AMBRISENTAN
     Indication: HEART DISEASE CONGENITAL
  3. REVATIO [Concomitant]
     Active Substance: SILDENAFIL CITRATE
  4. AMBRISENTAN [Suspect]
     Active Substance: AMBRISENTAN
     Indication: PULMONARY HYPERTENSION
     Dosage: 5 MG, QD
     Route: 065
     Dates: start: 201104
  5. REMODULIN [Concomitant]
     Active Substance: TREPROSTINIL
  6. AMBRISENTAN [Suspect]
     Active Substance: AMBRISENTAN
     Indication: LUNG DISORDER

REACTIONS (4)
  - Device related infection [Unknown]
  - Off label use [Unknown]
  - Infusion site discharge [Unknown]
  - Infusion site erythema [Unknown]
